FAERS Safety Report 10816211 (Version 2)
Quarter: 2018Q1

REPORT INFORMATION
  Report Type: Report from Study
  Country: None (occurrence: US)
  Receive Date: 20150218
  Receipt Date: 20180110
  Transmission Date: 20180508
  Serious: Yes (Other)
  Sender: FDA-Public Use
  Company Number: US-ABBVIE-14K-163-1286452-00

PATIENT
  Age: 53 Year
  Sex: Female
  Weight: 68.1 kg

DRUGS (5)
  1. HUMIRA [Suspect]
     Active Substance: ADALIMUMAB
     Route: 058
  2. ZYSOL [Concomitant]
     Indication: SEASONAL ALLERGY
  3. HUMIRA [Suspect]
     Active Substance: ADALIMUMAB
     Indication: RHEUMATOID ARTHRITIS
     Route: 058
     Dates: start: 2006, end: 2012
  4. CONCERTA [Concomitant]
     Active Substance: METHYLPHENIDATE HYDROCHLORIDE
     Indication: ENERGY INCREASED
  5. HUMIRA [Suspect]
     Active Substance: ADALIMUMAB
     Route: 058
     Dates: start: 20140918

REACTIONS (11)
  - Rheumatoid arthritis [Unknown]
  - Gastroenteritis viral [Recovered/Resolved]
  - Arthralgia [Recovered/Resolved]
  - Therapeutic response unexpected [Unknown]
  - Cartilage injury [Recovered/Resolved]
  - Coeliac disease [Not Recovered/Not Resolved]
  - Fatigue [Recovered/Resolved]
  - Bronchitis [Recovered/Resolved]
  - Bronchial hyperreactivity [Not Recovered/Not Resolved]
  - Constipation [Recovered/Resolved]
  - Gastrointestinal pain [Recovered/Resolved]

NARRATIVE: CASE EVENT DATE: 201205
